FAERS Safety Report 4350555-0 (Version None)
Quarter: 2004Q2

REPORT INFORMATION
  Report Type: 
  Country: None (occurrence: None)
  Receive Date: 20040430
  Receipt Date: 20040423
  Transmission Date: 20050107
  Serious: Yes (Death, Other)
  Sender: FDA-Public Use
  Company Number: HR-BRISTOL-MYERS SQUIBB COMPANY-12570040

PATIENT

DRUGS (4)
  1. ETOPOSIDE [Suspect]
     Indication: NON-HODGKIN'S LYMPHOMA
     Dosage: DAYS 1-3
     Route: 042
  2. IFOSFAMIDE [Suspect]
     Indication: NON-HODGKIN'S LYMPHOMA
     Dosage: DAYS 1-5
  3. METHOTREXATE [Suspect]
     Indication: NON-HODGKIN'S LYMPHOMA
     Dosage: DAYS 3-10
     Route: 042
  4. UROMITEXAN [Concomitant]
     Indication: PROPHYLAXIS

REACTIONS (3)
  - FEBRILE NEUTROPENIA [None]
  - INFECTION [None]
  - TUMOUR LYSIS SYNDROME [None]
